FAERS Safety Report 9574717 (Version 1)
Quarter: 2013Q4

REPORT INFORMATION
  Report Type: Spontaneous
  Country: JP (occurrence: JP)
  Receive Date: 20131001
  Receipt Date: 20131001
  Transmission Date: 20140711
  Serious: Yes (Other)
  Sender: FDA-Public Use
  Company Number: JP-JNJFOC-20130917403

PATIENT
  Sex: Male

DRUGS (1)
  1. ITRIZOLE [Suspect]
     Indication: ORAL CANDIDIASIS
     Route: 048

REACTIONS (4)
  - Jaundice [Unknown]
  - Pancreatic carcinoma [Unknown]
  - Pruritus [Unknown]
  - Oedema [Unknown]
